FAERS Safety Report 13762113 (Version 1)
Quarter: 2017Q3

REPORT INFORMATION
  Report Type: Report from Study
  Country: GB (occurrence: GB)
  Receive Date: 20170718
  Receipt Date: 20170718
  Transmission Date: 20171127
  Serious: Yes (Other)
  Sender: FDA-Public Use
  Company Number: GB-ROCHE-1958940

PATIENT

DRUGS (5)
  1. CAPECITABINE. [Suspect]
     Active Substance: CAPECITABINE
     Indication: GASTROOESOPHAGEAL CANCER
     Route: 048
  2. EPIRUBICIN [Suspect]
     Active Substance: EPIRUBICIN
     Indication: GASTROOESOPHAGEAL CANCER
     Route: 065
  3. OXALIPLATIN. [Suspect]
     Active Substance: OXALIPLATIN
     Indication: GASTROOESOPHAGEAL CANCER
     Route: 065
  4. CISPLATIN. [Suspect]
     Active Substance: CISPLATIN
     Indication: GASTROOESOPHAGEAL CANCER
     Route: 065
  5. FLUOROURACIL. [Suspect]
     Active Substance: FLUOROURACIL
     Indication: GASTROOESOPHAGEAL CANCER
     Route: 042

REACTIONS (14)
  - Diarrhoea [Unknown]
  - Fatigue [Unknown]
  - Neuropathy peripheral [Unknown]
  - Cardiotoxicity [Unknown]
  - Acute kidney injury [Unknown]
  - Cerebrovascular accident [Unknown]
  - Laryngospasm [Unknown]
  - Vomiting [Unknown]
  - Skin toxicity [Unknown]
  - Haematotoxicity [Unknown]
  - Sepsis [Unknown]
  - Anaphylactic reaction [Unknown]
  - Nausea [Unknown]
  - Embolism venous [Unknown]
